FAERS Safety Report 9113033 (Version 1)
Quarter: 2013Q1

REPORT INFORMATION
  Report Type: Spontaneous
  Country: NL (occurrence: NL)
  Receive Date: 20130211
  Receipt Date: 20130211
  Transmission Date: 20140127
  Serious: Yes (Hospitalization)
  Sender: FDA-Public Use
  Company Number: NL-PFIZER INC-2013048989

PATIENT
  Age: 53 Year
  Sex: Female

DRUGS (4)
  1. VENLAFAXINE HYDROCHLORIDE [Suspect]
     Indication: DEPRESSION
     Dosage: UNK
  2. CITALOPRAM [Suspect]
     Dosage: UNK
  3. AMITRIPTYLINE [Suspect]
     Dosage: UNK
  4. LORAZEPAM [Concomitant]
     Indication: DEPRESSION

REACTIONS (5)
  - Toxicity to various agents [Unknown]
  - Depressed level of consciousness [Unknown]
  - Respiratory acidosis [Unknown]
  - Cardiac output decreased [Recovered/Resolved]
  - Overdose [Unknown]
